FAERS Safety Report 13430494 (Version 2)
Quarter: 2017Q2

REPORT INFORMATION
  Report Type: Spontaneous
  Country: US (occurrence: US)
  Receive Date: 20170412
  Receipt Date: 20170420
  Transmission Date: 20170830
  Serious: Yes (Other)
  Sender: FDA-Public Use
  Company Number: US-PFIZER INC-2017154175

PATIENT
  Age: 58 Year
  Sex: Female

DRUGS (4)
  1. IBRANCE [Suspect]
     Active Substance: PALBOCICLIB
     Dosage: 100 MG, CYCLIC (1 CYCLE)
  2. IBRANCE [Suspect]
     Active Substance: PALBOCICLIB
     Dosage: 125 MG, CYCLIC (1 CYCLE)
  3. IBRANCE [Suspect]
     Active Substance: PALBOCICLIB
     Dosage: UNK
     Dates: start: 201612, end: 201704
  4. IBRANCE [Suspect]
     Active Substance: PALBOCICLIB
     Dosage: UNK
     Dates: start: 20161228, end: 20170329

REACTIONS (4)
  - White blood cell count decreased [Unknown]
  - Neoplasm progression [Not Recovered/Not Resolved]
  - Neutropenia [Unknown]
  - Hepatic enzyme increased [Not Recovered/Not Resolved]
